FAERS Safety Report 7495782-9 (Version None)
Quarter: 2011Q2

REPORT INFORMATION
  Report Type: 
  Country: None (occurrence: None)
  Receive Date: 20110523
  Receipt Date: 20110513
  Transmission Date: 20111010
  Serious: No
  Sender: FDA-Public Use
  Company Number: CA-ELI_LILLY_AND_COMPANY-CA201105003788

PATIENT
  Sex: Male

DRUGS (12)
  1. PAXIL [Concomitant]
  2. IMOVANE [Concomitant]
  3. VIAGRA [Concomitant]
  4. ZYPREXA [Suspect]
     Indication: BIPOLAR DISORDER
     Dosage: 2.5 MG, QD
  5. ANDRIOL [Concomitant]
  6. SYMBICORT [Concomitant]
  7. ZYPREXA [Suspect]
     Dosage: 5 MG, QD
  8. WELLBUTRIN [Concomitant]
  9. ATIVAN [Concomitant]
  10. NIZATIDINE [Concomitant]
  11. SIMVASTATIN [Concomitant]
  12. CIALIS [Concomitant]

REACTIONS (4)
  - DIABETES MELLITUS [None]
  - BLOOD TRIGLYCERIDES INCREASED [None]
  - BLOOD PRESSURE INCREASED [None]
  - OCCULT BLOOD POSITIVE [None]
